FAERS Safety Report 9292663 (Version 1)
Quarter: 2013Q2

REPORT INFORMATION
  Report Type: Spontaneous
  Country: CA (occurrence: CA)
  Receive Date: 20130516
  Receipt Date: 20130516
  Transmission Date: 20140414
  Serious: No
  Sender: FDA-Public Use
  Company Number: CA-SANOFI-AVENTIS-2013SA047455

PATIENT
  Age: 78 Year
  Sex: Female

DRUGS (5)
  1. MULTAQ [Suspect]
     Indication: ATRIAL FIBRILLATION
     Route: 048
     Dates: start: 201302
  2. COVERSYL [Concomitant]
     Indication: HYPERTENSION
     Route: 048
     Dates: start: 201302, end: 20130416
  3. COVERSYL [Concomitant]
     Indication: CARDIAC DISORDER
     Route: 048
     Dates: start: 201302, end: 20130416
  4. LOSEC [Concomitant]
  5. LEVOTHYROXINE SODIUM [Concomitant]

REACTIONS (1)
  - Blood creatinine increased [Not Recovered/Not Resolved]
